FAERS Safety Report 23411625 (Version 3)
Quarter: 2024Q2

REPORT INFORMATION
  Report Type: Spontaneous
  Country: US (occurrence: US)
  Receive Date: 20240117
  Receipt Date: 20240614
  Transmission Date: 20240716
  Serious: No
  Sender: FDA-Public Use
  Company Number: US-Blueprint Medicines Corporation-SP-US-2024-000065

PATIENT
  Age: 72 Year
  Sex: Female

DRUGS (3)
  1. AYVAKIT [Suspect]
     Active Substance: AVAPRITINIB
     Indication: Indolent systemic mastocytosis
     Route: 048
  2. AYVAKIT [Suspect]
     Active Substance: AVAPRITINIB
     Indication: Systemic mastocytosis
  3. BENADRYL [Suspect]
     Active Substance: DIPHENHYDRAMINE HYDROCHLORIDE
     Indication: Product used for unknown indication
     Route: 065

REACTIONS (11)
  - Urticaria [Recovering/Resolving]
  - Pain [Unknown]
  - Vomiting [Unknown]
  - Gastrointestinal disorder [Unknown]
  - Abdominal pain upper [Recovering/Resolving]
  - Diarrhoea [Unknown]
  - Hyperaesthesia [Unknown]
  - Pruritus [Recovering/Resolving]
  - Adverse food reaction [Unknown]
  - Dry eye [Unknown]
  - Drug hypersensitivity [Unknown]

NARRATIVE: CASE EVENT DATE: 20240524
